FAERS Safety Report 4673173-3 (Version None)
Quarter: 2005Q2

REPORT INFORMATION
  Report Type: 
  Country: None (occurrence: None)
  Receive Date: 20050525
  Receipt Date: 20050213
  Transmission Date: 20051028
  Serious: Yes (Hospitalization)
  Sender: FDA-Public Use
  Company Number: US-BOEHRINGER INGELHEIM PHARMACEUTICALS, INC.-2005-BP-02325BP

PATIENT
  Age: 70 Year
  Sex: Male

DRUGS (8)
  1. FLOMAX [Suspect]
     Indication: BENIGN PROSTATIC HYPERPLASIA
     Route: 048
     Dates: start: 20040101
  2. FLOMAX [Suspect]
     Route: 048
     Dates: start: 20000101, end: 20040101
  3. VITAMIN E [Concomitant]
     Indication: MEDICAL DIET
     Route: 048
  4. VIT C TAB [Concomitant]
     Indication: MEDICAL DIET
     Route: 048
  5. MTV [Concomitant]
     Indication: MEDICAL DIET
     Route: 048
  6. MSM [Concomitant]
     Indication: OSTEOARTHRITIS
     Route: 048
     Dates: start: 20040101
  7. LYCOPENE [Concomitant]
     Indication: MEDICAL DIET
     Route: 048
  8. SAW PALMETTO [Concomitant]
     Indication: BENIGN PROSTATIC HYPERPLASIA
     Route: 048

REACTIONS (3)
  - FATIGUE [None]
  - HYPERTENSION [None]
  - URINARY RETENTION [None]
